FAERS Safety Report 8449032-7 (Version None)
Quarter: 2012Q2

REPORT INFORMATION
  Report Type: 
  Country: None (occurrence: None)
  Receive Date: 20120619
  Receipt Date: 20120619
  Transmission Date: 20120825
  Serious: Yes (Hospitalization, Other)
  Sender: FDA-Public Use
  Company Number: DE-BAYER-2012-058803

PATIENT
  Age: 39 Year
  Sex: Female

DRUGS (1)
  1. BETASERON [Suspect]
     Indication: CLINICALLY ISOLATED SYNDROME
     Dosage: DAILY DOSE 250 ?G
     Route: 058
     Dates: start: 20110401

REACTIONS (2)
  - ABSCESS [None]
  - SKIN NECROSIS [None]
